FAERS Safety Report 9555621 (Version 1)
Quarter: 2013Q3

REPORT INFORMATION
  Report Type: Spontaneous
  Country: US (occurrence: US)
  Receive Date: 20130926
  Receipt Date: 20130926
  Transmission Date: 20140515
  Serious: Yes (Other)
  Sender: FDA-Public Use
  Company Number: PHEH2013US019978

PATIENT
  Sex: Female

DRUGS (2)
  1. MYFORTIC [Suspect]
     Dosage: UNK UKN, UNK
  2. CICLOSPORIN [Suspect]
     Dosage: UNK UKN, UNK

REACTIONS (1)
  - Retinal disorder [Unknown]
